FAERS Safety Report 5050900-7 (Version None)
Quarter: 2006Q3

REPORT INFORMATION
  Report Type: 
  Country: None (occurrence: None)
  Receive Date: 20060710
  Receipt Date: 20060627
  Transmission Date: 20061208
  Serious: Yes (Other)
  Sender: FDA-Public Use
  Company Number: 2006-BP-07413RO

PATIENT
  Age: 43 Year
  Sex: Female
  Weight: 102 kg

DRUGS (1)
  1. MORPHINE [Suspect]
     Indication: PAIN
     Dosage: 5 MG LOADING DOSE, UP TO 15 MG, MORPHINE 5 MG/ML, 2 MG PCA DOSE, 10-MIN LOCKOUT, NO 4 HR MAXIMUM, IV
     Route: 042

REACTIONS (8)
  - ACCIDENTAL OVERDOSE [None]
  - DRUG ADMINISTRATION ERROR [None]
  - FEELING ABNORMAL [None]
  - INADEQUATE ANALGESIA [None]
  - INCORRECT DRUG ADMINISTRATION RATE [None]
  - MEDICAL DEVICE COMPLICATION [None]
  - RESPIRATORY ARREST [None]
  - SOMNOLENCE [None]
